FAERS Safety Report 5934974-4 (Version None)
Quarter: 2008Q4

REPORT INFORMATION
  Report Type: 
  Country: None (occurrence: None)
  Receive Date: 20081028
  Receipt Date: 20081016
  Transmission Date: 20090506
  Serious: Yes (Hospitalization)
  Sender: FDA-Public Use
  Company Number: CERZ-1000396

PATIENT
  Age: 29 Year
  Sex: Female

DRUGS (5)
  1. CEREZYME [Suspect]
     Indication: GAUCHER'S DISEASE
     Dosage: 3400 U, Q2W, INTRAVENOUS; 60 U/KG, QW, INTRAVENOUS; 60 U/KG, Q2W,
     Route: 042
     Dates: start: 19960905, end: 19970201
  2. CEREZYME [Suspect]
     Indication: GAUCHER'S DISEASE
     Dosage: 3400 U, Q2W, INTRAVENOUS; 60 U/KG, QW, INTRAVENOUS; 60 U/KG, Q2W,
     Route: 042
     Dates: start: 19970201, end: 19970501
  3. CEREZYME [Suspect]
     Indication: GAUCHER'S DISEASE
     Dosage: 3400 U, Q2W, INTRAVENOUS; 60 U/KG, QW, INTRAVENOUS; 60 U/KG, Q2W,
     Route: 042
     Dates: start: 19970501, end: 19990101
  4. CEREZYME [Suspect]
     Indication: GAUCHER'S DISEASE
     Dosage: 3400 U, Q2W, INTRAVENOUS; 60 U/KG, QW, INTRAVENOUS; 60 U/KG, Q2W,
     Route: 042
     Dates: start: 20041201
  5. CEREZYME [Suspect]

REACTIONS (7)
  - BIPOLAR DISORDER [None]
  - CATHETER SITE PAIN [None]
  - CENTRAL LINE INFECTION [None]
  - CONDITION AGGRAVATED [None]
  - DRUG SPECIFIC ANTIBODY PRESENT [None]
  - HEPATOMEGALY [None]
  - SPLENOMEGALY [None]
